FAERS Safety Report 6676322-0 (Version None)
Quarter: 2010Q2

REPORT INFORMATION
  Report Type: 
  Country: None (occurrence: None)
  Receive Date: 20100412
  Receipt Date: 20100407
  Transmission Date: 20101027
  Serious: Yes (Other)
  Sender: FDA-Public Use
  Company Number: JP-ASTRAZENECA-2010SE15563

PATIENT
  Age: 78 Year
  Sex: Female

DRUGS (10)
  1. CRESTOR [Suspect]
     Indication: DYSLIPIDAEMIA
     Route: 048
     Dates: start: 20100125, end: 20100202
  2. AUGMENTIN '125' [Suspect]
     Indication: BRONCHITIS
     Route: 048
     Dates: start: 20100125, end: 20100129
  3. ARICEPT [Suspect]
     Route: 048
     Dates: start: 20091221
  4. WARFARIN SODIUM [Suspect]
     Route: 048
     Dates: start: 20091221
  5. STOMARCON [Suspect]
     Route: 048
     Dates: start: 20091221
  6. ATENEGINE [Suspect]
     Route: 048
     Dates: start: 20091221
  7. PLAVIX [Suspect]
     Route: 048
     Dates: start: 20091221
  8. SUNRYTHM [Suspect]
     Route: 048
     Dates: start: 20091221
  9. MAGNESIUM OXIDE [Suspect]
     Route: 048
     Dates: start: 20091221
  10. ENSURE LIQUID [Suspect]
     Route: 048
     Dates: start: 20091221

REACTIONS (1)
  - DRUG ERUPTION [None]
